FAERS Safety Report 11341168 (Version 4)
Quarter: 2016Q1

REPORT INFORMATION
  Report Type: Spontaneous
  Country: US (occurrence: US)
  Receive Date: 20150805
  Receipt Date: 20160318
  Transmission Date: 20160525
  Serious: Yes (Hospitalization, Other)
  Sender: FDA-Public Use
  Company Number: US-BAYER-2015-393099

PATIENT
  Age: 45 Year
  Sex: Female

DRUGS (1)
  1. MIRENA [Suspect]
     Active Substance: LEVONORGESTREL
     Indication: CONTRACEPTION
     Dosage: 20 MCG/24HR, CONT
     Route: 015
     Dates: start: 20140619, end: 20140825

REACTIONS (13)
  - Pyrexia [Recovered/Resolved]
  - Depression [None]
  - Swelling [None]
  - Device use error [None]
  - Uterine perforation [Recovered/Resolved]
  - Medical device pain [Recovered/Resolved]
  - Uterine pain [Recovered/Resolved]
  - Device issue [Recovered/Resolved]
  - Chills [None]
  - Injury [Recovered/Resolved]
  - Genital haemorrhage [None]
  - Headache [None]
  - Anxiety [None]

NARRATIVE: CASE EVENT DATE: 201406
